FAERS Safety Report 23128457 (Version 1)
Quarter: 2023Q4

REPORT INFORMATION
  Report Type: Spontaneous
  Country: US (occurrence: US)
  Receive Date: 20231031
  Receipt Date: 20231031
  Transmission Date: 20240109
  Serious: No
  Sender: FDA-Public Use
  Company Number: US-ACADIA PHARMACEUTICALS INC.-ACA-2023-TRF-004544

PATIENT
  Age: 2 Year
  Sex: Female

DRUGS (2)
  1. DAYBUE [Suspect]
     Active Substance: TROFINETIDE
     Dosage: UNK
     Route: 065
  2. DAYBUE [Suspect]
     Active Substance: TROFINETIDE
     Dosage: TEMPORARILY REDUCED HER DAYBUE DOSE
     Route: 065

REACTIONS (3)
  - Prescribed underdose [Recovered/Resolved]
  - Insomnia [Recovering/Resolving]
  - Diarrhoea [Unknown]
